FAERS Safety Report 14196531 (Version 1)
Quarter: 2017Q4

REPORT INFORMATION
  Report Type: Spontaneous
  Country: FR (occurrence: FR)
  Receive Date: 20171116
  Receipt Date: 20171116
  Transmission Date: 20180321
  Serious: Yes (Other)
  Sender: FDA-Public Use
  Company Number: FR-MERCK KGAA-2034380

PATIENT
  Age: 57 Year
  Sex: Female

DRUGS (4)
  1. NOVOTHYROX [Suspect]
     Active Substance: LEVOTHYROXINE SODIUM
     Indication: HYPOTHYROIDISM
     Route: 048
     Dates: start: 20170617
  2. STRUCTOFLEX [Concomitant]
     Active Substance: GLUCOSAMINE
  3. PIASCLEDINE [Concomitant]
     Active Substance: AVOCADO OIL\SOYBEAN OIL
  4. COPPER [Concomitant]
     Active Substance: COPPER

REACTIONS (5)
  - Pain in extremity [Not Recovered/Not Resolved]
  - Hypoaesthesia [Not Recovered/Not Resolved]
  - Back pain [Not Recovered/Not Resolved]
  - Arthralgia [Not Recovered/Not Resolved]
  - Fatigue [Not Recovered/Not Resolved]

NARRATIVE: CASE EVENT DATE: 201707
